FAERS Safety Report 5032566-5 (Version None)
Quarter: 2006Q2

REPORT INFORMATION
  Report Type: 
  Country: None (occurrence: None)
  Receive Date: 20060620
  Receipt Date: 20060602
  Transmission Date: 20061013
  Serious: Yes (Other)
  Sender: FDA-Public Use
  Company Number: 2006RR-02486

PATIENT
  Age: 19 Year
  Sex: Female

DRUGS (1)
  1. DOXYCYCLINE HYDROCHLORIDE (DOXYCYCLINE) UNKNOWN [Suspect]
     Indication: ACNE
     Dosage: 200 MG, QD

REACTIONS (2)
  - PHOTOONYCHOLYSIS [None]
  - SUNBURN [None]
